FAERS Safety Report 7970420-7 (Version None)
Quarter: 2011Q4

REPORT INFORMATION
  Report Type: 
  Country: None (occurrence: None)
  Receive Date: 20111122
  Receipt Date: 20110816
  Transmission Date: 20120403
  Serious: No
  Sender: FDA-Public Use
  Company Number: PHEH2011US02055

PATIENT
  Age: 46 Year
  Sex: Male
  Weight: 68 kg

DRUGS (5)
  1. GILENYA [Suspect]
     Dosage: 0.5MG, QD, ORAL
     Route: 048
  2. PAROXETINE HCL [Concomitant]
  3. PRILOSEC [Concomitant]
  4. MAGNESIUM SULFATE [Concomitant]
  5. BACLOFEN [Concomitant]

REACTIONS (1)
  - FATIGUE [None]
